FAERS Safety Report 8496409-X (Version None)
Quarter: 2012Q3

REPORT INFORMATION
  Report Type: 
  Country: None (occurrence: None)
  Receive Date: 20120709
  Receipt Date: 20120621
  Transmission Date: 20120928
  Serious: No
  Sender: FDA-Public Use
  Company Number: US-ASTRAZENECA-2012SE41742

PATIENT
  Age: 46 Year
  Sex: Female
  Weight: 70.3 kg

DRUGS (9)
  1. SEROQUEL [Suspect]
     Route: 048
     Dates: start: 20120618
  2. VITAMIN D [Concomitant]
  3. CYMBALTA [Concomitant]
  4. SEROQUEL [Suspect]
     Indication: BIPOLAR DISORDER
     Route: 048
  5. MIRALAX [Concomitant]
  6. COLACE [Concomitant]
  7. SEROQUEL [Suspect]
     Indication: PSYCHOTIC DISORDER
     Route: 048
  8. SEROQUEL [Suspect]
     Route: 048
     Dates: start: 20120618
  9. VITAMIN B 12 SHOTS [Concomitant]

REACTIONS (3)
  - MYALGIA [None]
  - PRURITUS [None]
  - PARKINSON'S DISEASE [None]
